FAERS Safety Report 10777916 (Version 1)
Quarter: 2015Q1

REPORT INFORMATION
  Report Type: Spontaneous
  Country: US (occurrence: US)
  Receive Date: 20150209
  Receipt Date: 20150209
  Transmission Date: 20150721
  Serious: No
  Sender: FDA-Public Use
  Company Number: US-AMGEN-USASP2014009205

PATIENT
  Age: 52 Year
  Sex: Female

DRUGS (20)
  1. NEULASTA [Suspect]
     Active Substance: PEGFILGRASTIM
     Indication: OFF LABEL USE
     Dosage: 6 MG, UNK
     Route: 058
  2. 5-FU                               /00098801/ [Concomitant]
     Active Substance: FLUOROURACIL
     Dosage: UNK
     Route: 042
  3. ALOXI [Concomitant]
     Active Substance: PALONOSETRON HYDROCHLORIDE
     Dosage: 0.25 MG, UNK
     Route: 042
  4. 5-FU                               /00098801/ [Concomitant]
     Active Substance: FLUOROURACIL
     Dosage: UNK
     Route: 042
  5. FUSILEV [Concomitant]
     Active Substance: LEVOLEUCOVORIN CALCIUM
     Dosage: 35 MG, UNK
     Route: 042
  6. BENADRYL [Concomitant]
     Active Substance: DIPHENHYDRAMINE HYDROCHLORIDE
     Dosage: 25 MG, UNK
     Route: 042
  7. COUMADIN [Concomitant]
     Active Substance: WARFARIN SODIUM
     Dosage: 7.5 M+TH 10 TWFSS
  8. 5-FU                               /00098801/ [Concomitant]
     Active Substance: FLUOROURACIL
     Dosage: UNK
     Route: 042
  9. 5-FU                               /00098801/ [Concomitant]
     Active Substance: FLUOROURACIL
     Dosage: UNK
     Route: 042
  10. AVASTIN [Concomitant]
     Active Substance: BEVACIZUMAB
     Indication: COLON CANCER
     Dosage: 1200 MG, UNK
     Route: 042
  11. AVASTIN [Concomitant]
     Active Substance: BEVACIZUMAB
     Dosage: 1000 MG, UNK
     Route: 042
     Dates: start: 20120404
  12. PROCRIT [Concomitant]
     Active Substance: ERYTHROPOIETIN
     Indication: PRODUCT USED FOR UNKNOWN INDICATION
     Dosage: 40000 UNK, UNK
     Route: 042
  13. DECADRON [Concomitant]
     Active Substance: DEXAMETHASONE
     Dosage: 6 MG, UNK
     Route: 042
  14. EMEND [Concomitant]
     Active Substance: APREPITANT
     Dosage: 150 MG, UNK
     Route: 042
  15. ERBITUX [Concomitant]
     Active Substance: CETUXIMAB
     Dosage: 800 MG, UNK
     Route: 042
  16. LEUCOVORIN                         /00566702/ [Concomitant]
     Active Substance: LEUCOVORIN
     Dosage: 60 MG, UNK
     Route: 042
     Dates: start: 20120627
  17. FUSILEV [Concomitant]
     Active Substance: LEVOLEUCOVORIN CALCIUM
     Dosage: 30 MG, UNK
     Route: 042
     Dates: start: 20120404, end: 20120620
  18. ERBITUX [Concomitant]
     Active Substance: CETUXIMAB
     Dosage: 500 MG, UNK
     Route: 042
  19. DECADRON [Concomitant]
     Active Substance: DEXAMETHASONE
     Dosage: 10 MG, UNK
     Route: 042
  20. OXALIPLATIN. [Concomitant]
     Active Substance: OXALIPLATIN
     Dosage: 180 MG, UNK
     Route: 042

REACTIONS (1)
  - Abdominal pain upper [Unknown]
